FAERS Safety Report 5460288-5 (Version None)
Quarter: 2007Q3

REPORT INFORMATION
  Report Type: 
  Country: None (occurrence: None)
  Receive Date: 20070919
  Receipt Date: 20070613
  Transmission Date: 20080115
  Serious: No
  Sender: FDA-Public Use
  Company Number: US-ASTRAZENECA-2007UW14164

PATIENT
  Age: 89 Year
  Sex: Female
  Weight: 51.7 kg

DRUGS (1)
  1. SEROQUEL [Suspect]

REACTIONS (1)
  - INCOHERENT [None]
